FAERS Safety Report 6730675-3 (Version None)
Quarter: 2010Q2

REPORT INFORMATION
  Report Type: 
  Country: None (occurrence: None)
  Receive Date: 20100518
  Receipt Date: 20100510
  Transmission Date: 20101027
  Serious: Yes (Other)
  Sender: FDA-Public Use
  Company Number: US-MERCK-1005USA00912

PATIENT
  Sex: Female

DRUGS (4)
  1. FOSAMAX [Suspect]
     Route: 047
  2. BONIVA [Suspect]
     Route: 065
  3. ACTONEL [Suspect]
     Route: 065
  4. RECLAST [Suspect]
     Route: 065

REACTIONS (1)
  - FEMUR FRACTURE [None]
